FAERS Safety Report 21846881 (Version 1)
Quarter: 2023Q1

REPORT INFORMATION
  Report Type: Spontaneous
  Country: DE (occurrence: DE)
  Receive Date: 20230111
  Receipt Date: 20230111
  Transmission Date: 20230418
  Serious: Yes (Other)
  Sender: FDA-Public Use
  Company Number: DE-DCGMA-22197351

PATIENT
  Age: 52 Year
  Sex: Female
  Weight: 84 kg

DRUGS (4)
  1. RAMIPRIL [Suspect]
     Active Substance: RAMIPRIL
     Indication: Hypertension
     Dosage: FORM OF ADMIN UNKNOWN
     Dates: start: 20210426, end: 20220218
  2. ROSUVASTATIN [Concomitant]
     Active Substance: ROSUVASTATIN
     Indication: Product used for unknown indication
     Dosage: FORM OF ADMIN UNKNOWN
  3. METFORMIN [Concomitant]
     Active Substance: METFORMIN HYDROCHLORIDE
     Indication: Product used for unknown indication
     Dosage: FORM OF ADMIN UNKNOWN
  4. TORSEMIDE [Concomitant]
     Active Substance: TORSEMIDE
     Indication: Product used for unknown indication
     Dosage: FORM OF ADMIN UNKNOWN

REACTIONS (2)
  - Transaminases increased [Unknown]
  - Hepatitis [Unknown]

NARRATIVE: CASE EVENT DATE: 20211214
